FAERS Safety Report 4666850-1 (Version None)
Quarter: 2005Q2

REPORT INFORMATION
  Report Type: 
  Country: None (occurrence: None)
  Receive Date: 20050518
  Receipt Date: 20050304
  Transmission Date: 20051028
  Serious: Yes (Other)
  Sender: FDA-Public Use
  Company Number: 2004117969

PATIENT
  Age: 27 Year
  Sex: Female
  Weight: 45.3597 kg

DRUGS (2)
  1. DEPO-PROVERA [Suspect]
     Indication: CONTRACEPTION
     Dosage: UNKNOWN ( 150 MG, 1ST INJ ) UNKNOWN, 150MG ( 150 MG, LAST INJ ) UNKNOWN
     Route: 065
     Dates: start: 20010306, end: 20010306
  2. DEPO-PROVERA [Suspect]
     Indication: CONTRACEPTION
     Dosage: UNKNOWN ( 150 MG, 1ST INJ ) UNKNOWN, 150MG ( 150 MG, LAST INJ ) UNKNOWN
     Route: 065
     Dates: start: 20041027, end: 20041027

REACTIONS (1)
  - UNINTENDED PREGNANCY [None]
